FAERS Safety Report 16171178 (Version 1)
Quarter: 2019Q2

REPORT INFORMATION
  Report Type: Spontaneous
  Country: US (occurrence: US)
  Receive Date: 20190408
  Receipt Date: 20190408
  Transmission Date: 20190711
  Serious: No
  Sender: FDA-Public Use
  Company Number: US-SHIRE-US201911432

PATIENT
  Sex: Female

DRUGS (5)
  1. XIIDRA [Suspect]
     Active Substance: LIFITEGRAST
     Indication: DRY EYE
     Dosage: 1 DOSAGE FORM, 1X/DAY:QD
     Route: 047
     Dates: start: 201901
  2. XIIDRA [Suspect]
     Active Substance: LIFITEGRAST
     Indication: BLEPHARITIS
  3. ALAWAY [Concomitant]
     Active Substance: KETOTIFEN FUMARATE
     Indication: PRODUCT USED FOR UNKNOWN INDICATION
  4. FLONASE [Concomitant]
     Active Substance: FLUTICASONE PROPIONATE
     Indication: PRODUCT USED FOR UNKNOWN INDICATION
  5. ALLEGRA [Concomitant]
     Active Substance: FEXOFENADINE HYDROCHLORIDE
     Indication: PRODUCT USED FOR UNKNOWN INDICATION

REACTIONS (6)
  - Off label use [Unknown]
  - Pain of skin [Unknown]
  - Instillation site discomfort [Unknown]
  - Instillation site pain [Unknown]
  - Instillation site irritation [Unknown]
  - Dysgeusia [Unknown]
